FAERS Safety Report 25256559 (Version 1)
Quarter: 2025Q2

REPORT INFORMATION
  Report Type: Report from Study
  Country: US (occurrence: US)
  Receive Date: 20250430
  Receipt Date: 20250430
  Transmission Date: 20250717
  Serious: Yes (Hospitalization)
  Sender: ABBVIE
  Company Number: US-ABBVIE-6252673

PATIENT
  Age: 33 Year
  Sex: Male

DRUGS (1)
  1. RINVOQ [Suspect]
     Active Substance: UPADACITINIB
     Indication: Crohn^s disease
     Route: 048
     Dates: start: 20240131

REACTIONS (4)
  - Large intestine perforation [Unknown]
  - Postoperative abscess [Unknown]
  - Large intestine polyp [Unknown]
  - Postpolypectomy syndrome [Unknown]

NARRATIVE: CASE EVENT DATE: 20250401
